FAERS Safety Report 5391254-6 (Version None)
Quarter: 2007Q3

REPORT INFORMATION
  Report Type: 
  Country: None (occurrence: None)
  Receive Date: 20070717
  Receipt Date: 20070703
  Transmission Date: 20080115
  Serious: Yes (Other)
  Sender: FDA-Public Use
  Company Number: 2007US-08495

PATIENT
  Age: 16 Year
  Sex: Male

DRUGS (2)
  1. ISOTRETINOIN [Suspect]
     Indication: ACNE CYSTIC
     Dosage: 10 MG; 40 MG
     Dates: start: 20070101, end: 20070621
  2. ISOTRETINOIN [Suspect]
     Indication: ACNE CYSTIC
     Dosage: 10 MG; 40 MG
     Dates: start: 20070101, end: 20070621

REACTIONS (2)
  - CARDIAC DISORDER [None]
  - CARDIOMYOPATHY [None]
